FAERS Safety Report 24782223 (Version 2)
Quarter: 2025Q1

REPORT INFORMATION
  Report Type: Spontaneous
  Country: US (occurrence: US)
  Receive Date: 20241227
  Receipt Date: 20250103
  Transmission Date: 20250408
  Serious: No
  Sender: BIONPHARMA INC.
  Company Number: US-Bion-014616

PATIENT
  Age: 90 Year
  Sex: Female

DRUGS (1)
  1. LOPERAMIDE HYDROCHLORIDE [Suspect]
     Active Substance: LOPERAMIDE HYDROCHLORIDE
     Indication: Diarrhoea

REACTIONS (1)
  - Therapeutic product effect incomplete [Not Recovered/Not Resolved]
